FAERS Safety Report 16162494 (Version 1)
Quarter: 2019Q2

REPORT INFORMATION
  Report Type: Spontaneous
  Country: US (occurrence: US)
  Receive Date: 20190405
  Receipt Date: 20190405
  Transmission Date: 20190711
  Serious: No
  Sender: FDA-Public Use
  Company Number: US-ASTRAZENECA-2019SE40789

PATIENT
  Sex: Female

DRUGS (1)
  1. FARXIGA [Suspect]
     Active Substance: DAPAGLIFLOZIN PROPANEDIOL
     Dosage: 5.0MG UNKNOWN
     Route: 048

REACTIONS (8)
  - Back pain [Unknown]
  - Constipation [Unknown]
  - Product dose omission [Unknown]
  - Dizziness [Unknown]
  - Nausea [Unknown]
  - Swelling [Unknown]
  - Fatigue [Unknown]
  - Hepatic steatosis [Unknown]
